FAERS Safety Report 9269847 (Version 1)
Quarter: 2013Q2

REPORT INFORMATION
  Report Type: Report from Study
  Country: US (occurrence: US)
  Receive Date: 20130503
  Receipt Date: 20130503
  Transmission Date: 20140414
  Serious: Yes (Hospitalization, Other)
  Sender: FDA-Public Use
  Company Number: US-ABBOTT-13P-163-1081091-00

PATIENT
  Age: 34 Year
  Sex: Female

DRUGS (24)
  1. HUMIRA [Suspect]
     Indication: CROHN^S DISEASE
     Route: 058
     Dates: start: 2009, end: 20100127
  2. HUMIRA [Suspect]
     Dates: start: 20130424, end: 20130424
  3. IMURAN [Suspect]
     Indication: CROHN^S DISEASE
     Dates: end: 20100127
  4. ACYCLOVIR [Concomitant]
     Indication: ORAL HERPES
  5. CYMBALTA [Concomitant]
     Indication: DEPRESSION
  6. FLOVENT [Concomitant]
     Indication: ASTHMA
  7. GABAPENTIN [Concomitant]
     Indication: NEURALGIA
  8. GLUTOSE [Concomitant]
     Indication: HYPOGLYCAEMIA
  9. LORATADINE [Concomitant]
     Indication: HYPERSENSITIVITY
  10. LORAZEPAM [Concomitant]
     Indication: ANXIETY
  11. PRILOSEC [Concomitant]
     Indication: GASTROOESOPHAGEAL REFLUX DISEASE
  12. PROAIR [Concomitant]
     Indication: ASTHMA
  13. QUETIAPINE [Concomitant]
     Indication: BIPOLAR DISORDER
  14. TOPIRAMATE [Concomitant]
     Indication: MIGRAINE
  15. TOPIRAMATE [Concomitant]
     Indication: CONVULSION
  16. NORCO [Concomitant]
     Indication: PAIN
     Dosage: 10/325 1-2 TABS EVERY 4-6 HOURS
  17. VITAMIN B COMPLEX [Concomitant]
     Indication: VITAMIN B COMPLEX DEFICIENCY
  18. CALCIUM +D [Concomitant]
     Indication: PRODUCT USED FOR UNKNOWN INDICATION
     Dosage: 600/400
  19. MULTIVITAMIN [Concomitant]
     Indication: PRODUCT USED FOR UNKNOWN INDICATION
  20. VITAMIN D [Concomitant]
     Indication: PRODUCT USED FOR UNKNOWN INDICATION
  21. UNKNOWN MEDICATION [Concomitant]
     Indication: PRODUCT USED FOR UNKNOWN INDICATION
     Dosage: DAILY INFUSIONS 1000ML NS WITH KCL FOLLOWED BY 3 NS FLUSHES AND 1 HEPARIN FLUSH
  22. FLEXERIL [Concomitant]
     Indication: MUSCLE SPASMS
  23. IMITREX [Concomitant]
     Indication: MIGRAINE
  24. TRIAMCINOLONE [Concomitant]
     Indication: ECZEMA

REACTIONS (19)
  - Female genital tract fistula [Unknown]
  - Intestinal fistula [Unknown]
  - Intestinal obstruction [Unknown]
  - Ulcer [Unknown]
  - Anorectal disorder [Unknown]
  - Patient-device incompatibility [Unknown]
  - Respiratory failure [Recovered/Resolved]
  - Cardiac failure [Recovered/Resolved]
  - Gastrointestinal haemorrhage [Recovered/Resolved]
  - Haemoglobin decreased [Unknown]
  - Abdominal abscess [Unknown]
  - Postoperative abscess [Unknown]
  - Dehydration [Recovered/Resolved]
  - Crohn^s disease [Recovered/Resolved]
  - Orthostatic hypotension [Recovering/Resolving]
  - Bladder pain [Unknown]
  - Periodontal disease [Recovering/Resolving]
  - Tooth disorder [Recovering/Resolving]
  - Bladder spasm [Recovering/Resolving]
